FAERS Safety Report 21539041 (Version 2)
Quarter: 2022Q4

REPORT INFORMATION
  Report Type: Spontaneous
  Country: US (occurrence: US)
  Receive Date: 20221102
  Receipt Date: 20221109
  Transmission Date: 20230113
  Serious: Yes (Other)
  Sender: FDA-Public Use
  Company Number: US-AUROBINDO-AUR-APL-2022-045636

PATIENT
  Age: 59 Year
  Sex: Female
  Weight: 86.18 kg

DRUGS (2)
  1. ZIPRASIDONE HYDROCHLORIDE [Suspect]
     Active Substance: ZIPRASIDONE HYDROCHLORIDE
     Indication: Delusional disorder, unspecified type
     Dosage: 80 MILLIGRAM,(80MG TWICE DAILY BY MOUTH) ONCE A DAY
     Route: 048
  2. GEODON [Suspect]
     Active Substance: ZIPRASIDONE HYDROCHLORIDE\ZIPRASIDONE MESYLATE
     Indication: Delusional disorder, unspecified type
     Dosage: 80 MILLIGRAM,(80 MG TWICE DAILY BY MOUTH) TWO TIMES A DAY
     Route: 048
     Dates: start: 2000

REACTIONS (5)
  - Haemorrhage [Unknown]
  - Confusional state [Unknown]
  - Tremor [Unknown]
  - Condition aggravated [Unknown]
  - Psychotic disorder [Unknown]
